FAERS Safety Report 9066781 (Version 4)
Quarter: 2015Q2

REPORT INFORMATION
  Report Type: Spontaneous
  Country: US (occurrence: US)
  Receive Date: 20130214
  Receipt Date: 20150427
  Transmission Date: 20150821
  Serious: Yes (Hospitalization)
  Sender: FDA-Public Use
  Company Number: US-GLAXOSMITHKLINE-A1012086A

PATIENT
  Age: 49 Year
  Sex: Female

DRUGS (4)
  1. FLOLAN [Suspect]
     Active Substance: EPOPROSTENOL SODIUM
     Indication: PULMONARY ARTERIAL HYPERTENSION
     Dosage: CONTINUOUS
     Route: 042
     Dates: start: 20080125
  2. LETAIRIS [Concomitant]
     Active Substance: AMBRISENTAN
  3. LASIX [Concomitant]
     Active Substance: FUROSEMIDE
  4. FLOLAN [Suspect]
     Active Substance: EPOPROSTENOL SODIUM
     Dosage: 29 NG/KG/MIN CONTINUOUS; CONCENTRATION: 60,000 NG/ML; PUMP RATE: 81 ML/DAY; VIAL STRENGTH: 1.5 MG
     Dates: start: 20080125

REACTIONS (2)
  - Device leakage [Unknown]
  - Emergency care examination [Unknown]

NARRATIVE: CASE EVENT DATE: 201502
